FAERS Safety Report 19015804 (Version 3)
Quarter: 2021Q2

REPORT INFORMATION
  Report Type: Spontaneous
  Country: ES (occurrence: ES)
  Receive Date: 20210316
  Receipt Date: 20210421
  Transmission Date: 20210717
  Serious: Yes (Other)
  Sender: FDA-Public Use
  Company Number: ES-PFIZER INC-2021242535

PATIENT
  Age: 60 Year
  Sex: Male

DRUGS (1)
  1. RITUXIMAB. [Suspect]
     Active Substance: RITUXIMAB
     Indication: MANTLE CELL LYMPHOMA STAGE IV
     Dosage: UNK (MAINTENANCE TREATMENT WITH EIGHT WEEKLY)
     Dates: start: 20190529, end: 202001

REACTIONS (1)
  - Hypogammaglobulinaemia [Unknown]
